FAERS Safety Report 15768345 (Version 7)
Quarter: 2020Q2

REPORT INFORMATION
  Report Type: Report from Study
  Country: CA (occurrence: CA)
  Receive Date: 20181227
  Receipt Date: 20200630
  Transmission Date: 20200713
  Serious: Yes (Other)
  Sender: FDA-Public Use
  Company Number: PHHY2018CA195193

PATIENT
  Age: 49 Year
  Sex: Male

DRUGS (4)
  1. SANDOSTATIN [Suspect]
     Active Substance: OCTREOTIDE ACETATE
     Indication: CARCINOID TUMOUR
     Dosage: 50 UG, BID
     Route: 058
     Dates: start: 20181101
  2. ATIVAN [Concomitant]
     Active Substance: LORAZEPAM
     Indication: ANXIETY
     Dosage: UNK
     Route: 048
  3. LOVENOX [Concomitant]
     Active Substance: ENOXAPARIN SODIUM
     Indication: PRODUCT USED FOR UNKNOWN INDICATION
     Dosage: 40 MG, QD
     Route: 058
     Dates: start: 20190719
  4. SANDOSTATIN LAR DEPOT [Suspect]
     Active Substance: OCTREOTIDE ACETATE
     Indication: CARCINOID TUMOUR
     Dosage: 20 MG, Q4W
     Route: 030
     Dates: start: 20181115

REACTIONS (15)
  - Irritable bowel syndrome [Unknown]
  - Abdominal pain upper [Unknown]
  - Metastases to lymph nodes [Unknown]
  - Incision site pain [Unknown]
  - Metastases to peritoneum [Unknown]
  - Blood pressure increased [Unknown]
  - Contusion [Unknown]
  - Decreased appetite [Unknown]
  - Back pain [Unknown]
  - Heart rate increased [Unknown]
  - Stress [Unknown]
  - Abdominal pain lower [Unknown]
  - Metastases to liver [Unknown]
  - Restlessness [Unknown]
  - Erythema [Unknown]

NARRATIVE: CASE EVENT DATE: 20181219
